FAERS Safety Report 19139556 (Version 1)
Quarter: 2021Q2

REPORT INFORMATION
  Report Type: Spontaneous
  Country: US (occurrence: US)
  Receive Date: 20210414
  Receipt Date: 20210414
  Transmission Date: 20210717
  Serious: No
  Sender: FDA-Public Use
  Company Number: None

PATIENT
  Age: 9 Year
  Sex: Female
  Weight: 36.29 kg

DRUGS (2)
  1. GUANFACINE HCI 2MG [Suspect]
     Active Substance: GUANFACINE HYDROCHLORIDE
     Indication: ATTENTION DEFICIT HYPERACTIVITY DISORDER
     Dates: start: 20210302
  2. INTUNIV [Concomitant]
     Active Substance: GUANFACINE HYDROCHLORIDE
     Dates: start: 20210302, end: 20210414

REACTIONS (5)
  - Recalled product administered [None]
  - Emotional disorder [None]
  - Abnormal behaviour [None]
  - Screaming [None]
  - Product contamination [None]
